FAERS Safety Report 5464224-7 (Version None)
Quarter: 2007Q3

REPORT INFORMATION
  Report Type: 
  Country: None (occurrence: None)
  Receive Date: 20070921
  Receipt Date: 20070911
  Transmission Date: 20080115
  Serious: Yes (Hospitalization)
  Sender: FDA-Public Use
  Company Number: DE-ELI_LILLY_AND_COMPANY-DE200709002461

PATIENT
  Age: 63 Year
  Sex: Male
  Weight: 102 kg

DRUGS (9)
  1. BYETTA [Suspect]
     Indication: TYPE 2 DIABETES MELLITUS
     Dosage: 5 UG, 2/D
     Route: 058
     Dates: start: 20070724, end: 20070827
  2. BYETTA [Suspect]
     Dosage: 10 UG, 2/D
     Route: 058
     Dates: start: 20070828
  3. AVANDAMET [Concomitant]
     Indication: DIABETES MELLITUS
     Route: 048
  4. GLYBURIDE [Concomitant]
     Indication: DIABETES MELLITUS
     Route: 048
  5. ALLOPURINOL [Concomitant]
     Indication: HYPERURICAEMIA
     Route: 048
  6. FUROSEMIDE [Concomitant]
     Indication: HYPERTONIA
     Route: 048
  7. OMEPRAZOLE [Concomitant]
     Indication: GASTROOESOPHAGEAL REFLUX DISEASE
     Route: 048
  8. METOPROLOL SUCCINATE [Concomitant]
     Indication: HYPERTONIA
     Route: 048
  9. ANTIHYPERTENSIVES [Concomitant]
     Indication: HYPERTONIA
     Route: 048

REACTIONS (1)
  - CEREBROVASCULAR ACCIDENT [None]
